FAERS Safety Report 9630726 (Version 2)
Quarter: 2014Q3

REPORT INFORMATION
  Report Type: Spontaneous
  Country: US (occurrence: None)
  Receive Date: 20131016
  Receipt Date: 20140804
  Transmission Date: 20150326
  Serious: Yes (Death)
  Sender: FDA-Public Use
  Company Number: 1713747-2013-99960

PATIENT
  Age: 68 Year
  Sex: Male
  Weight: 110 kg

DRUGS (14)
  1. ASA [Concomitant]
     Active Substance: ASPIRIN
  2. NORCO [Concomitant]
     Active Substance: ACETAMINOPHEN\HYDROCODONE BITARTRATE
  3. LIPITOR [Concomitant]
     Active Substance: ATORVASTATIN CALCIUM
  4. ALLOPURINOL. [Concomitant]
     Active Substance: ALLOPURINOL
  5. DELFLEX [Suspect]
     Active Substance: CALCIUM CHLORIDE\DEXTROSE MONOHYDRATE\MAGNESIUM CHLORIDE\SODIUM CHLORIDE\SODIUM LACTATE
     Indication: RENAL FAILURE CHRONIC
     Dosage: 2.5% DEXTROSE, 5CYCLES
     Dates: start: 20131009
  6. LORAZEPAM. [Concomitant]
     Active Substance: LORAZEPAM
  7. LIBERTY CYCLER AND LIBERTY CYCLER TUBING [Concomitant]
  8. PHOSLO [Concomitant]
     Active Substance: CALCIUM ACETATE
  9. PLAVIX [Concomitant]
     Active Substance: CLOPIDOGREL BISULFATE
  10. CALCITRIOL. [Concomitant]
     Active Substance: CALCITRIOL
  11. CARVEDILOL. [Concomitant]
     Active Substance: CARVEDILOL
  12. AMLODIPINE BESYLATE AND BENAZEPRIL HCL [Concomitant]
     Active Substance: AMLODIPINE BESYLATE\BENAZEPRIL HYDROCHLORIDE
  13. RENA-VITE [Concomitant]
     Active Substance: VITAMINS
  14. RENVELA [Concomitant]
     Active Substance: SEVELAMER CARBONATE

REACTIONS (1)
  - Unresponsive to stimuli [None]

NARRATIVE: CASE EVENT DATE: 20131009
